FAERS Safety Report 21435488 (Version 1)
Quarter: 2022Q4

REPORT INFORMATION
  Report Type: Spontaneous
  Country: US (occurrence: US)
  Receive Date: 20221010
  Receipt Date: 20221010
  Transmission Date: 20230113
  Serious: Yes (Hospitalization)
  Sender: FDA-Public Use
  Company Number: US-MYLANLABS-2022M1110517

PATIENT
  Age: 15 Month
  Sex: Male

DRUGS (6)
  1. CYCLOSPORINE [Suspect]
     Active Substance: CYCLOSPORINE
     Indication: Immunosuppressant drug therapy
     Dosage: UNK
     Route: 061
  2. CYCLOSPORINE [Suspect]
     Active Substance: CYCLOSPORINE
     Indication: IPEX syndrome
  3. SIROLIMUS [Suspect]
     Active Substance: SIROLIMUS
     Indication: Immunosuppressant drug therapy
     Dosage: UNK, SYSTEMIC THERAPY
     Route: 065
  4. SIROLIMUS [Suspect]
     Active Substance: SIROLIMUS
     Indication: IPEX syndrome
  5. RITUXIMAB [Concomitant]
     Active Substance: RITUXIMAB
     Indication: Haemolytic anaemia
     Dosage: UNK
     Route: 065
  6. ABATACEPT [Concomitant]
     Active Substance: ABATACEPT
     Indication: Haemolytic anaemia
     Dosage: UNK
     Route: 065

REACTIONS (1)
  - Drug ineffective [Unknown]
